FAERS Safety Report 21372012 (Version 7)
Quarter: 2023Q1

REPORT INFORMATION
  Report Type: Report from Study
  Country: ES (occurrence: ES)
  Receive Date: 20220923
  Receipt Date: 20230214
  Transmission Date: 20230418
  Serious: Yes (Hospitalization, Other)
  Sender: FDA-Public Use
  Company Number: ES-GILEAD-2022-0594144

PATIENT
  Age: 41 Year
  Sex: Female
  Weight: 95.6 kg

DRUGS (13)
  1. SACITUZUMAB GOVITECAN [Suspect]
     Active Substance: SACITUZUMAB GOVITECAN
     Indication: Triple negative breast cancer
     Dosage: 956 MG ON DAYS 1 AND 8 OF EACH 21 DAY CYCLE
     Route: 042
     Dates: start: 20220728, end: 20220804
  2. ATEZOLIZUMAB [Suspect]
     Active Substance: ATEZOLIZUMAB
     Indication: Triple negative breast cancer
     Dosage: 1200 MG ON DAY 1 OF EACH 21-DAY CYCLE
     Route: 041
     Dates: start: 20220728
  3. ACETAMINOPHEN [Concomitant]
     Active Substance: ACETAMINOPHEN
     Dosage: UNK
     Dates: start: 20220728, end: 20220728
  4. ACETAMINOPHEN [Concomitant]
     Active Substance: ACETAMINOPHEN
     Dosage: UNK
     Dates: start: 20220804, end: 20220804
  5. GRANISETRON [Concomitant]
     Active Substance: GRANISETRON
     Dosage: UNK
     Route: 042
     Dates: start: 20220728, end: 20220728
  6. GRANISETRON [Concomitant]
     Active Substance: GRANISETRON
     Dosage: UNK
     Dates: start: 20220804, end: 20220804
  7. GRANISETRON [Concomitant]
     Active Substance: GRANISETRON
     Dosage: 1 MG, QD
     Route: 042
     Dates: start: 20220810, end: 20220823
  8. POLARAMINE [Concomitant]
     Active Substance: DEXCHLORPHENIRAMINE MALEATE
     Dosage: UNK
     Dates: start: 20220728, end: 20220728
  9. POLARAMINE [Concomitant]
     Active Substance: DEXCHLORPHENIRAMINE MALEATE
     Dosage: UNK
     Dates: start: 20220804, end: 20220804
  10. DOCETAXEL [Concomitant]
     Active Substance: DOCETAXEL
  11. CARBOPLATIN [Concomitant]
     Active Substance: CARBOPLATIN
  12. CAPECITABINE [Concomitant]
     Active Substance: CAPECITABINE
  13. ERIBULIN [Concomitant]
     Active Substance: ERIBULIN

REACTIONS (1)
  - Neutropenic colitis [Recovered/Resolved]

NARRATIVE: CASE EVENT DATE: 20220810
